FAERS Safety Report 10690534 (Version 1)
Quarter: 2015Q1

REPORT INFORMATION
  Report Type: Spontaneous
  Country: US (occurrence: None)
  Receive Date: 20150102
  Receipt Date: 20150102
  Transmission Date: 20150720
  Serious: Yes (Death, Hospitalization)
  Sender: FDA-Public Use
  Company Number: 1526355

PATIENT
  Age: 78 Year
  Sex: Female

DRUGS (2)
  1. LEVOFLOXACIN (NON-SPECIFIC) [Suspect]
     Active Substance: LEVOFLOXACIN
     Indication: PNEUMONIA
  2. VANCOMYCIN (NON-SPECIFIC) [Suspect]
     Active Substance: VANCOMYCIN
     Indication: PNEUMONIA

REACTIONS (5)
  - Multi-organ failure [None]
  - Shock [None]
  - Disseminated intravascular coagulation [None]
  - Acute generalised exanthematous pustulosis [None]
  - White blood cell count increased [None]
